FAERS Safety Report 25126095 (Version 1)
Quarter: 2025Q1

REPORT INFORMATION
  Report Type: Spontaneous
  Country: US (occurrence: US)
  Receive Date: 20250326
  Receipt Date: 20250326
  Transmission Date: 20250409
  Serious: Yes (Other)
  Sender: AMGEN
  Company Number: US-AMGEN-USASP2025055527

PATIENT
  Age: 56 Year
  Sex: Male

DRUGS (3)
  1. KRYSTEXXA [Suspect]
     Active Substance: PEGLOTICASE
     Indication: Gouty tophus
     Route: 065
     Dates: start: 2014
  2. KRYSTEXXA [Suspect]
     Active Substance: PEGLOTICASE
     Route: 065
  3. METHOTREXATE [Suspect]
     Active Substance: METHOTREXATE
     Indication: Product used for unknown indication
     Route: 065

REACTIONS (4)
  - Renal impairment [Unknown]
  - Infected gouty tophus [Not Recovered/Not Resolved]
  - Blood uric acid increased [Unknown]
  - Therapeutic product effect decreased [Unknown]
